FAERS Safety Report 7403800-9 (Version None)
Quarter: 2011Q2

REPORT INFORMATION
  Report Type: 
  Country: None (occurrence: None)
  Receive Date: 20110408
  Receipt Date: 20110329
  Transmission Date: 20111010
  Serious: Yes (Other)
  Sender: FDA-Public Use
  Company Number: PHHY2011US26048

PATIENT
  Sex: Female

DRUGS (1)
  1. GILENYA [Suspect]
     Indication: MULTIPLE SCLEROSIS
     Dosage: 0.5 MG, QD
     Route: 048
     Dates: start: 20110321

REACTIONS (7)
  - URINARY TRACT INFECTION [None]
  - VISION BLURRED [None]
  - PYREXIA [None]
  - FEELING HOT [None]
  - NAUSEA [None]
  - ABNORMAL SENSATION IN EYE [None]
  - CHILLS [None]
